FAERS Safety Report 17510597 (Version 1)
Quarter: 2020Q1

REPORT INFORMATION
  Report Type: Spontaneous
  Country: ES (occurrence: ES)
  Receive Date: 20200306
  Receipt Date: 20200306
  Transmission Date: 20200409
  Serious: Yes (Hospitalization, Disabling, Other)
  Sender: FDA-Public Use
  Company Number: ES-009507513-2003ESP000844

PATIENT
  Age: 38 Year
  Sex: Male

DRUGS (2)
  1. VORICONAZOLE. [Suspect]
     Active Substance: VORICONAZOLE
     Indication: TRACHEOBRONCHITIS BACTERIAL
  2. POSACONAZOLE [Suspect]
     Active Substance: POSACONAZOLE
     Indication: TRACHEOBRONCHITIS BACTERIAL
     Dosage: UNK
     Dates: start: 201601

REACTIONS (4)
  - Lung transplant rejection [Unknown]
  - Pain in extremity [Unknown]
  - Musculoskeletal disorder [Unknown]
  - Prevertebral soft tissue swelling of cervical space [Unknown]

NARRATIVE: CASE EVENT DATE: 2017
